FAERS Safety Report 18277129 (Version 1)
Quarter: 2020Q3

REPORT INFORMATION
  Report Type: Spontaneous
  Country: US (occurrence: US)
  Receive Date: 20200917
  Receipt Date: 20200917
  Transmission Date: 20201103
  Serious: No
  Sender: FDA-Public Use
  Company Number: US-ALLERGAN-2025529US

PATIENT
  Age: 34 Year
  Sex: Female

DRUGS (1)
  1. SUCRALFATE ? BP [Suspect]
     Active Substance: SUCRALFATE
     Indication: PRODUCT USED FOR UNKNOWN INDICATION
     Dosage: 10ML FOUR TIMES DAILY
     Dates: start: 20200512

REACTIONS (2)
  - Product container seal issue [Unknown]
  - Product dispensing issue [Unknown]

NARRATIVE: CASE EVENT DATE: 20200512
